FAERS Safety Report 24555633 (Version 1)
Quarter: 2024Q4

REPORT INFORMATION
  Report Type: Spontaneous
  Country: US (occurrence: None)
  Receive Date: 20241025
  Receipt Date: 20241025
  Transmission Date: 20250115
  Serious: No
  Sender: Public
  Company Number: None

PATIENT
  Age: 85 Year
  Sex: Female
  Weight: 74.84 kg

DRUGS (1)
  1. ADBRY [Suspect]
     Active Substance: TRALOKINUMAB-LDRM
     Indication: Dermatitis atopic
     Dosage: OTHER FREQUENCY : 4SYRINGESONDAY1,THEN200EVERYWKS;?
     Route: 058
     Dates: start: 202408

REACTIONS (1)
  - Urinary tract infection [None]
